FAERS Safety Report 24884324 (Version 1)
Quarter: 2025Q1

REPORT INFORMATION
  Report Type: Spontaneous
  Country: AU (occurrence: AU)
  Receive Date: 20250124
  Receipt Date: 20250124
  Transmission Date: 20250409
  Serious: No
  Sender: ASTELLAS
  Company Number: AU-ASTELLAS-2025-AER-002915

PATIENT
  Age: 67 Year
  Sex: Female

DRUGS (1)
  1. VEOZAH [Suspect]
     Active Substance: FEZOLINETANT
     Indication: Menopausal symptoms
     Dosage: ONE TABLET ONCE DAILY
     Route: 065

REACTIONS (1)
  - Therapeutic response shortened [Unknown]
